FAERS Safety Report 16122008 (Version 2)
Quarter: 2019Q3

REPORT INFORMATION
  Report Type: Spontaneous
  Country: US (occurrence: US)
  Receive Date: 20190327
  Receipt Date: 20190723
  Transmission Date: 20191004
  Serious: No
  Sender: FDA-Public Use
  Company Number: US-PFIZER INC-2017200010

PATIENT
  Age: 71 Year
  Sex: Female

DRUGS (27)
  1. LYRICA [Suspect]
     Active Substance: PREGABALIN
     Indication: NEUROPATHY PERIPHERAL
     Dosage: 150 MG, 1X/DAY
  2. SUPHEDRINE [CHLORPHENAMINE MALEATE;PSEUDOEPHEDRINE HYDROCHLORIDE] [Concomitant]
     Indication: NASAL CONGESTION
     Dosage: 10 MG, AS NEEDED
     Route: 045
     Dates: start: 1995, end: 2018
  3. PHAZYME [SIMETICONE] [Concomitant]
     Dosage: UNK, AS NEEDED
     Dates: start: 2000
  4. ACETAMINOPHEN. [Concomitant]
     Active Substance: ACETAMINOPHEN
     Indication: ARTHRALGIA
     Dosage: UNK, AS NEEDED
     Dates: start: 1999
  5. PROCTOFOAM HC [Concomitant]
     Active Substance: HYDROCORTISONE ACETATE\PRAMOXINE HYDROCHLORIDE
     Dosage: UNK UNK, AS NEEDED (1 % FOAM TID PRN)
     Dates: start: 2000
  6. FLONASE SENSIMIST ALLERGY RELIEF [Concomitant]
     Active Substance: FLUTICASONE FUROATE
     Indication: HYPERSENSITIVITY
     Dosage: UNK, AS NEEDED
     Dates: start: 2018
  7. SYSTANE ULTRA [Concomitant]
     Active Substance: POLYETHYLENE GLYCOL 400\PROPYLENE GLYCOL
     Indication: DRY EYE
     Dosage: UNK, AS NEEDED
     Dates: start: 2013
  8. LYRICA [Suspect]
     Active Substance: PREGABALIN
     Indication: PAIN
     Dosage: 75 MG, 2X/DAY
  9. LIDOCAINE. [Concomitant]
     Active Substance: LIDOCAINE
     Dosage: 3 TIMES PER DAY AS NEEDED
     Dates: start: 2017
  10. SYSTANE ULTRA [Concomitant]
     Active Substance: POLYETHYLENE GLYCOL 400\PROPYLENE GLYCOL
     Indication: EYE IRRITATION
  11. ALPRAZOLAM. [Concomitant]
     Active Substance: ALPRAZOLAM
     Indication: ANXIETY
     Dosage: 0.25 MG 4 TIMES PER DAY AS NEEDED
     Dates: start: 2010
  12. MUPIROCIN. [Concomitant]
     Active Substance: MUPIROCIN
     Dosage: UNK, AS NEEDED
     Dates: start: 2006
  13. EXCEDRIN [ACETYLSALICYLIC ACID;CAFFEINE;PARACETAMOL;SALICYLAMIDE] [Concomitant]
     Indication: MIGRAINE
     Dosage: UNK, AS NEEDED
     Dates: start: 2000
  14. ALLEGRA-D [Concomitant]
     Active Substance: FEXOFENADINE\PSEUDOEPHEDRINE
     Indication: HYPERSENSITIVITY
     Dosage: UNK, AS NEEDED
     Dates: start: 1995, end: 2017
  15. ROBAXIN [Concomitant]
     Active Substance: METHOCARBAMOL
     Dosage: 750MG 1-2 DAILY
  16. VALTREX [Concomitant]
     Active Substance: VALACYCLOVIR HYDROCHLORIDE
     Dosage: 500 MG, 1X/DAY
     Dates: start: 2010
  17. SALONPAS [CAMPHOR;MENTHOL;METHYL SALICYLATE;THYMOL] [Concomitant]
     Dosage: UNK
     Dates: start: 2017
  18. COLACE [Concomitant]
     Active Substance: DOCUSATE SODIUM
     Dosage: UNK, 1X/DAY, (2-3 CAPSULES QD (ONCE A DAY)
     Dates: start: 2010
  19. ADVIL [IBUPROFEN] [Concomitant]
     Active Substance: IBUPROFEN
     Dosage: 200 MG, AS NEEDED (2 EVERY 6 HRS PRN)
  20. SIMPLY SALINE [Concomitant]
     Indication: HYPERSENSITIVITY
     Dosage: UNK, AS NEEDED
     Route: 045
     Dates: start: 2010
  21. ADVILGEL [Concomitant]
     Active Substance: IBUPROFEN
     Dosage: UNK
     Dates: start: 2000
  22. VITAMIN B12 [Concomitant]
     Active Substance: CYANOCOBALAMIN
     Indication: VITAMIN B12 DEFICIENCY
     Dosage: UNK, WEEKLY
     Route: 030
     Dates: start: 2017
  23. LYRICA [Suspect]
     Active Substance: PREGABALIN
     Indication: NEURALGIA
     Dosage: 150 MG, 2X/DAY
     Dates: start: 2017
  24. LYRICA [Suspect]
     Active Substance: PREGABALIN
     Indication: CHRONIC INFLAMMATORY DEMYELINATING POLYRADICULONEUROPATHY
  25. VITAMIN B-1 [Concomitant]
     Active Substance: THIAMINE HYDROCHLORIDE
     Dosage: 100 MG, 1X/DAY
  26. ALLOPURINOL. [Concomitant]
     Active Substance: ALLOPURINOL
     Dosage: 300 MG, 1X/DAY
     Dates: start: 2010
  27. VITAMIN D3 [Concomitant]
     Active Substance: CHOLECALCIFEROL
     Dosage: 2000 IU, 1X/DAY
     Dates: start: 2010

REACTIONS (2)
  - Therapeutic product effect incomplete [Unknown]
  - Disease progression [Unknown]
